FAERS Safety Report 4444941-8 (Version None)
Quarter: 2004Q3

REPORT INFORMATION
  Report Type: 
  Country: None (occurrence: None)
  Receive Date: 20040903
  Receipt Date: 20040825
  Transmission Date: 20050211
  Serious: Yes (Death)
  Sender: FDA-Public Use
  Company Number: 2004-08-1545

PATIENT
  Age: 56 Year
  Sex: Male

DRUGS (6)
  1. TEMODAR [Suspect]
     Dosage: SEE IMAGE
     Route: 048
     Dates: start: 20040201, end: 20040201
  2. TEMODAR [Suspect]
     Dosage: SEE IMAGE
     Route: 048
     Dates: start: 20040301, end: 20040301
  3. TEMODAR [Suspect]
     Dosage: SEE IMAGE
     Route: 048
     Dates: start: 20040401, end: 20040401
  4. TEMODAR [Suspect]
     Dosage: SEE IMAGE
     Route: 048
     Dates: start: 20040501, end: 20040501
  5. TEMODAR [Suspect]
     Dosage: SEE IMAGE
     Route: 048
     Dates: start: 20040601, end: 20040601
  6. CARBAMAZEPINE [Suspect]
     Dosage: 1000 MG DAILY

REACTIONS (1)
  - DRUG INTERACTION [None]
